FAERS Safety Report 6824184-0 (Version None)
Quarter: 2010Q3

REPORT INFORMATION
  Report Type: 
  Country: None (occurrence: None)
  Receive Date: 20100708
  Receipt Date: 20061010
  Transmission Date: 20110219
  Serious: No
  Sender: FDA-Public Use
  Company Number: US-PFIZER INC-2006125971

PATIENT
  Sex: Female
  Weight: 67.13 kg

DRUGS (2)
  1. CHANTIX [Suspect]
     Indication: SMOKING CESSATION THERAPY
     Dates: start: 20061006, end: 20061007
  2. LORAZEPAM [Concomitant]

REACTIONS (1)
  - URTICARIA [None]
